FAERS Safety Report 8194373-4 (Version None)
Quarter: 2012Q1

REPORT INFORMATION
  Report Type: 
  Country: None (occurrence: None)
  Receive Date: 20120308
  Receipt Date: 20120306
  Transmission Date: 20120608
  Serious: Yes (Hospitalization)
  Sender: FDA-Public Use
  Company Number: CH-BAYER-2012-016922

PATIENT
  Age: 59 Year
  Sex: Male

DRUGS (4)
  1. SORAFENIB (RAF KINASE INHIBITOR) [Suspect]
     Indication: RECTAL CANCER
     Dosage: TOTAL DAILY DOSE: 400 MG
     Route: 048
     Dates: start: 20120213, end: 20120218
  2. SORAFENIB (RAF KINASE INHIBITOR) [Suspect]
     Dosage: UNK
     Dates: start: 20120222, end: 20120224
  3. CAPECITABINE [Suspect]
     Indication: RECTAL CANCER
     Dosage: TOTAL DAILY DOSE: 3000 MG
     Route: 048
     Dates: start: 20120213, end: 20120218
  4. CAPECITABINE [Suspect]
     Dosage: UNK
     Dates: start: 20120222, end: 20120224

REACTIONS (1)
  - ILEUS [None]
